FAERS Safety Report 5407211-7 (Version None)
Quarter: 2007Q3

REPORT INFORMATION
  Report Type: 
  Country: None (occurrence: None)
  Receive Date: 20070807
  Receipt Date: 20070731
  Transmission Date: 20080115
  Serious: Yes (Hospitalization, Disabling, Other)
  Sender: FDA-Public Use
  Company Number: A0667368A

PATIENT
  Sex: Male
  Weight: 3.4 kg

DRUGS (4)
  1. PAXIL CR [Suspect]
     Indication: OBSESSIVE-COMPULSIVE DISORDER
     Dosage: 75MG PER DAY
  2. ZYPREXA [Concomitant]
  3. PROZAC [Concomitant]
  4. ATIVAN [Concomitant]

REACTIONS (5)
  - DRUG EXPOSURE DURING PREGNANCY [None]
  - DRUG EXPOSURE VIA BREAST MILK [None]
  - DYSTONIA [None]
  - FEELING JITTERY [None]
  - REFLEXES ABNORMAL [None]
